FAERS Safety Report 9152260 (Version 1)
Quarter: 2013Q1

REPORT INFORMATION
  Report Type: Spontaneous
  Country: US (occurrence: US)
  Receive Date: 20130308
  Receipt Date: 20130308
  Transmission Date: 20140127
  Serious: No
  Sender: FDA-Public Use
  Company Number: US-ASTRAZENECA-2013SE10147

PATIENT
  Sex: Male

DRUGS (2)
  1. CRESTOR [Suspect]
     Route: 048
     Dates: start: 20120814
  2. CRESTOR [Suspect]
     Route: 048

REACTIONS (3)
  - Toothache [Unknown]
  - Impaired driving ability [Unknown]
  - Arthralgia [Unknown]
